FAERS Safety Report 10686254 (Version 1)
Quarter: 2014Q4

REPORT INFORMATION
  Report Type: Report from Study
  Country: GR (occurrence: GR)
  Receive Date: 20141231
  Receipt Date: 20141231
  Transmission Date: 20150529
  Serious: Yes (Death, Other)
  Sender: FDA-Public Use
  Company Number: GR-ASTELLAS-2014US021791

PATIENT

DRUGS (2)
  1. ERLOTINIB [Suspect]
     Active Substance: ERLOTINIB
     Indication: NON-SMALL CELL LUNG CANCER METASTATIC
     Route: 048
  2. DOCETAXEL. [Suspect]
     Active Substance: DOCETAXEL
     Indication: NON-SMALL CELL LUNG CANCER METASTATIC
     Route: 042

REACTIONS (10)
  - Hypersensitivity [Unknown]
  - Death [Fatal]
  - Neurotoxicity [Unknown]
  - Neutropenia [Unknown]
  - Haematotoxicity [Unknown]
  - Psoriasis [Unknown]
  - Cardiotoxicity [Unknown]
  - Coagulopathy [Unknown]
  - Metabolic disorder [Unknown]
  - Bone marrow toxicity [Unknown]
